FAERS Safety Report 7353942-1 (Version None)
Quarter: 2011Q1

REPORT INFORMATION
  Report Type: 
  Country: None (occurrence: None)
  Receive Date: 20110315
  Receipt Date: 20110314
  Transmission Date: 20110831
  Serious: Yes (Hospitalization, Other)
  Sender: FDA-Public Use
  Company Number: US-ABBOTT-11P-163-0710078-00

PATIENT
  Sex: Male
  Weight: 88.984 kg

DRUGS (11)
  1. XOPENEX [Concomitant]
     Indication: DYSPNOEA
  2. HYDROCODONE BITARTRATE [Concomitant]
     Indication: NEURALGIA
     Dosage: 5/500 1 OR 2 EVERY 6 HRS AS NEEDED.
  3. XOPENEX [Concomitant]
     Indication: PNEUMONIA
     Dates: start: 20110301
  4. NEXIUM [Concomitant]
     Indication: PRODUCT USED FOR UNKNOWN INDICATION
  5. LACTULOSE [Concomitant]
     Indication: CIRRHOSIS ALCOHOLIC
     Dosage: 1 TABLESPOON DAILY
  6. ADVAIR DISKUS 100/50 [Concomitant]
     Indication: PRODUCT USED FOR UNKNOWN INDICATION
  7. PRAVASTATIN [Concomitant]
     Indication: BLOOD CHOLESTEROL INCREASED
  8. HUMIRA [Suspect]
     Indication: PSORIASIS
     Route: 058
     Dates: start: 20110302
  9. GABAPENTIN [Concomitant]
     Indication: NEUROPATHY PERIPHERAL
  10. SERTRALINE [Concomitant]
     Indication: PRODUCT USED FOR UNKNOWN INDICATION
  11. FOLIC ACID [Concomitant]
     Indication: PRODUCT USED FOR UNKNOWN INDICATION

REACTIONS (4)
  - DYSPNOEA [None]
  - PNEUMONIA [None]
  - CHILLS [None]
  - BLOOD GLUCOSE INCREASED [None]
